FAERS Safety Report 9099035 (Version 1)
Quarter: 2013Q1

REPORT INFORMATION
  Report Type: Spontaneous
  Country: US (occurrence: US)
  Receive Date: 20130213
  Receipt Date: 20130213
  Transmission Date: 20140127
  Serious: Yes (Death)
  Sender: FDA-Public Use
  Company Number: US-PFIZER INC-2013056555

PATIENT
  Age: 30 Year
  Sex: Female

DRUGS (1)
  1. SUTENT [Suspect]
     Indication: RENAL CANCER
     Dosage: TABLET DAILY FOR 4 WEEKS ON AND 2 WEEKS OFF
     Route: 048

REACTIONS (2)
  - Disease progression [Fatal]
  - Renal cancer [Fatal]
